FAERS Safety Report 24561670 (Version 1)
Quarter: 2024Q4

REPORT INFORMATION
  Report Type: Spontaneous
  Country: US (occurrence: US)
  Receive Date: 20241029
  Receipt Date: 20241029
  Transmission Date: 20250115
  Serious: Yes (Hospitalization)
  Sender: SANOFI AVENTIS
  Company Number: US-SA-2024SA308501

PATIENT
  Age: 70 Year
  Sex: Female

DRUGS (16)
  1. DUPIXENT [Suspect]
     Active Substance: DUPILUMAB
     Indication: Dermatitis atopic
     Dosage: 300 MG, QOW
     Route: 058
  2. AJOVY [Concomitant]
     Active Substance: FREMANEZUMAB-VFRM
  3. ATORVASTATIN CALCIUM [Concomitant]
     Active Substance: ATORVASTATIN CALCIUM
  4. CITALOPRAM HYDROBROMIDE [Concomitant]
     Active Substance: CITALOPRAM HYDROBROMIDE
  5. CLONAZEPAM [Concomitant]
     Active Substance: CLONAZEPAM
  6. FAMOTIDINE [Concomitant]
     Active Substance: FAMOTIDINE
  7. FIORICET [Concomitant]
     Active Substance: ACETAMINOPHEN\BUTALBITAL\CAFFEINE
  8. GABAPENTIN [Concomitant]
     Active Substance: GABAPENTIN
  9. MAGNESIUM OXIDE [Concomitant]
     Active Substance: MAGNESIUM OXIDE
  10. MAXALT-MLT [Concomitant]
     Active Substance: RIZATRIPTAN BENZOATE
  11. MECLIZINE HYDROCHLORIDE [Concomitant]
     Active Substance: MECLIZINE HYDROCHLORIDE
  12. NEXIUM 24HR [Concomitant]
     Active Substance: ESOMEPRAZOLE MAGNESIUM
  13. PREMARIN [Concomitant]
     Active Substance: ESTROGENS, CONJUGATED
  14. TIROSINT [Concomitant]
     Active Substance: LEVOTHYROXINE SODIUM
  15. TIZANIDINE HYDROCHLORIDE [Concomitant]
     Active Substance: TIZANIDINE HYDROCHLORIDE
  16. TOUJEO [Concomitant]
     Active Substance: INSULIN GLARGINE

REACTIONS (9)
  - Diarrhoea [Unknown]
  - Skin fissures [Unknown]
  - Dry skin [Unknown]
  - Blood glucose abnormal [Unknown]
  - Blood pressure abnormal [Unknown]
  - Dehydration [Unknown]
  - Skin exfoliation [Unknown]
  - Pruritus [Unknown]
  - Rash [Unknown]

NARRATIVE: CASE EVENT DATE: 20241001
